FAERS Safety Report 25883093 (Version 1)
Quarter: 2025Q4

REPORT INFORMATION
  Report Type: Spontaneous
  Country: US (occurrence: US)
  Receive Date: 20251006
  Receipt Date: 20251006
  Transmission Date: 20260118
  Serious: No
  Sender: ROCHE
  Company Number: US-ROCHE-10000400509

PATIENT
  Age: 24 Year
  Sex: Female
  Weight: 117.03 kg

DRUGS (9)
  1. XOLAIR [Suspect]
     Active Substance: OMALIZUMAB
     Indication: Urticaria chronic
     Dosage: USES ONE 300MG AUTOINJECTOR AND ONE 150MG AUTOINJECTOR
     Route: 058
     Dates: start: 20250929
  2. XOLAIR [Suspect]
     Active Substance: OMALIZUMAB
     Indication: Urticaria chronic
     Route: 058
     Dates: start: 20250408, end: 20250929
  3. XOLAIR [Suspect]
     Active Substance: OMALIZUMAB
  4. ZYRTEC [Concomitant]
     Active Substance: CETIRIZINE HYDROCHLORIDE
     Indication: Pruritus
     Dosage: TAKES TWO 10MG TABLETS TWICE DAILY.
     Route: 048
     Dates: start: 202501
  5. ZYRTEC [Concomitant]
     Active Substance: CETIRIZINE HYDROCHLORIDE
     Indication: Urticaria
  6. HYDROXYZINE [Concomitant]
     Active Substance: HYDROXYZINE HYDROCHLORIDE
     Indication: Pruritus
     Dosage: TAKES 4-8 TABLETS AS NEEDED AT BED TIME
     Route: 048
     Dates: start: 20250224
  7. PREDNISONE [Concomitant]
     Active Substance: PREDNISONE
     Indication: Urticaria chronic
     Route: 048
  8. PREDNISONE [Concomitant]
     Active Substance: PREDNISONE
     Route: 048
     Dates: end: 202508
  9. PREDNISONE [Concomitant]
     Active Substance: PREDNISONE
     Route: 048
     Dates: start: 202508

REACTIONS (7)
  - Injection site pain [Recovered/Resolved]
  - Exposure via skin contact [Unknown]
  - Wrong technique in product usage process [Unknown]
  - Urticaria [Not Recovered/Not Resolved]
  - Accidental underdose [Unknown]
  - Wrong technique in device usage process [Unknown]
  - Off label use [Unknown]

NARRATIVE: CASE EVENT DATE: 20250929
